FAERS Safety Report 21886912 (Version 1)
Quarter: 2023Q1

REPORT INFORMATION
  Report Type: Report from Study
  Country: US (occurrence: US)
  Receive Date: 20230119
  Receipt Date: 20230119
  Transmission Date: 20230418
  Serious: Yes (Hospitalization)
  Sender: FDA-Public Use
  Company Number: US-JNJFOC-20230134932

PATIENT
  Age: 39 Year
  Sex: Male

DRUGS (17)
  1. AMIVANTAMAB [Suspect]
     Active Substance: AMIVANTAMAB
     Indication: Non-small cell lung cancer metastatic
     Route: 042
     Dates: start: 20220419, end: 20221116
  2. PEMETREXED [Suspect]
     Active Substance: PEMETREXED
     Indication: Non-small cell lung cancer metastatic
     Route: 042
     Dates: start: 20220419, end: 20221116
  3. CARBOPLATIN [Concomitant]
     Active Substance: CARBOPLATIN
     Indication: Non-small cell lung cancer metastatic
     Route: 042
     Dates: start: 20220419, end: 20220622
  4. XANAX [Concomitant]
     Active Substance: ALPRAZOLAM
     Indication: Anxiety
     Route: 048
     Dates: start: 20220331
  5. ONDANSETRON [Concomitant]
     Active Substance: ONDANSETRON
     Indication: Premedication
     Route: 048
     Dates: start: 20220404
  6. FOLIC ACID [Concomitant]
     Active Substance: FOLIC ACID
     Indication: Premedication
     Route: 048
     Dates: start: 20220405
  7. DEXAMETHASONE [Concomitant]
     Active Substance: DEXAMETHASONE
     Indication: Premedication
     Route: 048
     Dates: start: 20220412
  8. DEXAMETHASONE [Concomitant]
     Active Substance: DEXAMETHASONE
     Route: 042
     Dates: start: 20220419
  9. MIRABEGRON [Concomitant]
     Active Substance: MIRABEGRON
     Indication: Hypertonic bladder
     Route: 048
     Dates: start: 20220622
  10. ISOTRETINOIN [Concomitant]
     Active Substance: ISOTRETINOIN
     Indication: Rash maculo-papular
     Route: 048
     Dates: start: 20220707
  11. ISOTRETINOIN [Concomitant]
     Active Substance: ISOTRETINOIN
     Indication: Rash pustular
  12. PREDNISONE [Concomitant]
     Active Substance: PREDNISONE
     Indication: Rash maculo-papular
     Route: 048
     Dates: start: 20220707
  13. PREDNISONE [Concomitant]
     Active Substance: PREDNISONE
     Indication: Rash pustular
  14. MUPIROCIN [Concomitant]
     Active Substance: MUPIROCIN
     Indication: Paronychia
     Route: 061
     Dates: start: 20220808
  15. CLOBETASOL [Concomitant]
     Active Substance: CLOBETASOL
     Indication: Paronychia
     Route: 061
     Dates: start: 20220808
  16. LIDOCAINE\PRILOCAINE [Concomitant]
     Active Substance: LIDOCAINE\PRILOCAINE
     Indication: Paronychia
     Route: 061
     Dates: start: 20220820
  17. DAPSONE [Concomitant]
     Active Substance: DAPSONE
     Indication: Rash pustular
     Route: 048
     Dates: start: 20221019

REACTIONS (1)
  - Rash pustular [Recovered/Resolved with Sequelae]

NARRATIVE: CASE EVENT DATE: 20221215
